FAERS Safety Report 13851690 (Version 1)
Quarter: 2017Q3

REPORT INFORMATION
  Report Type: Spontaneous
  Country: US (occurrence: US)
  Receive Date: 20170810
  Receipt Date: 20170810
  Transmission Date: 20171127
  Serious: No
  Sender: FDA-Public Use
  Company Number: PHEH2017US025048

PATIENT
  Sex: Female

DRUGS (1)
  1. TASIGNA [Suspect]
     Active Substance: NILOTINIB
     Indication: CHRONIC MYELOID LEUKAEMIA
     Dosage: 300 MG, BID
     Route: 048
     Dates: start: 20170721

REACTIONS (4)
  - Headache [Recovered/Resolved]
  - Palpitations [Not Recovered/Not Resolved]
  - Myalgia [Recovered/Resolved]
  - Abdominal pain upper [Not Recovered/Not Resolved]
